FAERS Safety Report 9094007 (Version 1)
Quarter: 2013Q1

REPORT INFORMATION
  Report Type: Report from Study
  Country: US (occurrence: US)
  Receive Date: 20130201
  Receipt Date: 20130201
  Transmission Date: 20140127
  Serious: Yes (Life-Threatening, Hospitalization)
  Sender: FDA-Public Use
  Company Number: US-009507513-1301USA013497

PATIENT
  Age: 4 Year
  Sex: Male
  Weight: 20.5 kg

DRUGS (1)
  1. VORINOSTAT [Suspect]
     Indication: BRAIN STEM GLIOMA
     Dosage: 230 MG/M2, 1}5 WEEKLY
     Route: 048
     Dates: start: 20121218, end: 20130122

REACTIONS (2)
  - Neutrophil count decreased [Recovering/Resolving]
  - Device related infection [Recovering/Resolving]
